FAERS Safety Report 18616688 (Version 1)
Quarter: 2020Q4

REPORT INFORMATION
  Report Type: Spontaneous
  Country: FR (occurrence: FR)
  Receive Date: 20201215
  Receipt Date: 20201215
  Transmission Date: 20210114
  Serious: Yes (Hospitalization)
  Sender: FDA-Public Use
  Company Number: FR-TEVA-2020-FR-1857530

PATIENT
  Age: 79 Year
  Sex: Female

DRUGS (17)
  1. IMIPENEM MONOHYDRATE [Suspect]
     Active Substance: IMIPENEM
     Indication: PRODUCT USED FOR UNKNOWN INDICATION
     Route: 042
     Dates: start: 20201015, end: 20201015
  2. THIOCOLCHICOSIDE [Concomitant]
     Active Substance: THIOCOLCHICOSIDE
  3. MIANSERINE (CHLORHYDRATE DE) [Concomitant]
     Active Substance: MIANSERIN HYDROCHLORIDE
  4. EUPRESSYL [Concomitant]
     Active Substance: URAPIDIL
  5. FUROSEMIDE. [Suspect]
     Active Substance: FUROSEMIDE
     Indication: PRODUCT USED FOR UNKNOWN INDICATION
     Route: 048
     Dates: start: 20201015
  6. AMLODIPINE [Suspect]
     Active Substance: AMLODIPINE BESYLATE
     Indication: PRODUCT USED FOR UNKNOWN INDICATION
     Route: 048
     Dates: start: 20200928, end: 20201114
  7. PARACETAMOL [Concomitant]
     Active Substance: ACETAMINOPHEN
  8. DIGOXINE [Concomitant]
     Active Substance: DIGOXIN
  9. ALLOPURINOL. [Suspect]
     Active Substance: ALLOPURINOL
     Indication: PRODUCT USED FOR UNKNOWN INDICATION
     Route: 048
     Dates: start: 20201016, end: 20201114
  10. HYDROCHLOROTHIAZIDE. [Suspect]
     Active Substance: HYDROCHLOROTHIAZIDE
     Indication: PRODUCT USED FOR UNKNOWN INDICATION
     Route: 048
     Dates: start: 20201014, end: 20201114
  11. COLCHICINE. [Concomitant]
     Active Substance: COLCHICINE
  12. BISOPROLOL (FUMARATE ACIDE DE) [Concomitant]
     Active Substance: BISOPROLOL FUMARATE
  13. SERESTA [Concomitant]
     Active Substance: OXAZEPAM
  14. LEVOTHYROXINE SODIQUE [Concomitant]
     Active Substance: LEVOTHYROXINE SODIUM
  15. IRBESARTAN. [Concomitant]
     Active Substance: IRBESARTAN
  16. ERTAPENEM. [Concomitant]
     Active Substance: ERTAPENEM SODIUM
  17. COUMADINE [Concomitant]
     Active Substance: WARFARIN SODIUM

REACTIONS (1)
  - Toxic epidermal necrolysis [Not Recovered/Not Resolved]

NARRATIVE: CASE EVENT DATE: 20201111
